FAERS Safety Report 17954338 (Version 8)
Quarter: 2021Q1

REPORT INFORMATION
  Report Type: Spontaneous
  Country: US (occurrence: US)
  Receive Date: 20200629
  Receipt Date: 20210311
  Transmission Date: 20210419
  Serious: No
  Sender: FDA-Public Use
  Company Number: US-GLAXOSMITHKLINE-US2020AMR113008

PATIENT
  Age: 65 Year
  Sex: Female

DRUGS (6)
  1. ZEJULA [Suspect]
     Active Substance: NIRAPARIB
     Dosage: 200 MG, QD
     Route: 048
  2. ZEJULA [Suspect]
     Active Substance: NIRAPARIB
     Dosage: 200 MG, QD
     Route: 065
  3. ZEJULA [Suspect]
     Active Substance: NIRAPARIB
     Dosage: 200 MG, QD
     Route: 048
  4. ZEJULA [Suspect]
     Active Substance: NIRAPARIB
     Indication: OVARIAN CANCER
     Dosage: 200 MG, QD (AT 7:30 PM WITH FOOD)
     Route: 048
     Dates: start: 20200612
  5. ZEJULA [Suspect]
     Active Substance: NIRAPARIB
     Dosage: 200 MG, QD
  6. ZEJULA [Suspect]
     Active Substance: NIRAPARIB
     Dosage: 200 MG, QD
     Route: 048

REACTIONS (14)
  - Nausea [Not Recovered/Not Resolved]
  - Dyspepsia [Unknown]
  - Piloerection [Unknown]
  - Abdominal discomfort [Unknown]
  - Blood pressure increased [Not Recovered/Not Resolved]
  - Hypoaesthesia [Unknown]
  - Pruritus [Unknown]
  - Fatigue [Unknown]
  - Rash [Not Recovered/Not Resolved]
  - Dysgeusia [Not Recovered/Not Resolved]
  - Dry mouth [Not Recovered/Not Resolved]
  - Sleep disorder [Unknown]
  - Insomnia [Unknown]
  - Thyroid disorder [Unknown]

NARRATIVE: CASE EVENT DATE: 202006
